FAERS Safety Report 21672685 (Version 1)
Quarter: 2022Q4

REPORT INFORMATION
  Report Type: Report from Study
  Country: EG (occurrence: EG)
  Receive Date: 20221202
  Receipt Date: 20221202
  Transmission Date: 20230113
  Serious: Yes (Life-Threatening, Other)
  Sender: FDA-Public Use
  Company Number: EG-002147023-NVSC2022EG185625

PATIENT
  Age: 37 Year
  Sex: Female

DRUGS (12)
  1. GILENYA [Suspect]
     Active Substance: FINGOLIMOD HYDROCHLORIDE
     Indication: Multiple sclerosis
     Dosage: 0.5 MG, QD
     Route: 048
     Dates: start: 2021, end: 2021
  2. GILENYA [Suspect]
     Active Substance: FINGOLIMOD HYDROCHLORIDE
     Dosage: 0.5 MG, QD
     Route: 048
     Dates: start: 202201
  3. GILENYA [Suspect]
     Active Substance: FINGOLIMOD HYDROCHLORIDE
     Dosage: 0.5 MG, QD
     Route: 048
     Dates: start: 202202
  4. BENFOTIAMINE\CYANOCOBALAMIN\PYRIDOXINE HYDROCHLORIDE [Concomitant]
     Active Substance: BENFOTIAMINE\CYANOCOBALAMIN\PYRIDOXINE HYDROCHLORIDE
     Indication: Neuralgia
     Dosage: UNK UNK, QD
     Route: 065
  5. BENFOTIAMINE\CYANOCOBALAMIN\PYRIDOXINE HYDROCHLORIDE [Concomitant]
     Active Substance: BENFOTIAMINE\CYANOCOBALAMIN\PYRIDOXINE HYDROCHLORIDE
     Indication: Vitamin supplementation
     Dosage: 1 DOSAGE FORM, QD
     Route: 048
     Dates: start: 202201
  6. OMEGA 3 [Concomitant]
     Active Substance: CAPSAICIN
     Indication: Supplementation therapy
     Dosage: UNK UNK, QD
     Route: 065
  7. OMEGA 3 [Concomitant]
     Active Substance: CAPSAICIN
     Indication: Vitamin supplementation
     Dosage: 1 DOSAGE FORM, QD
     Route: 048
     Dates: start: 202201
  8. GAPTIN [Concomitant]
     Indication: Neuralgia
     Dosage: 1 DOSAGE FORM, QD, AT NIGHT
     Route: 048
     Dates: start: 202201
  9. GAPTIN [Concomitant]
     Indication: Sleep deficit
     Dosage: UNK UNK, QD
     Route: 065
     Dates: start: 202205
  10. GAPTIN [Concomitant]
     Indication: Muscle relaxant therapy
  11. BONE CARE [Concomitant]
     Active Substance: ATRACTYLODES LANCEA ROOT
     Indication: Neuralgia
     Dosage: UNK UNK, QD (AILTERNATIVE FOR ONE ALPHA ( VIT D ))
     Route: 065
  12. BONE CARE [Concomitant]
     Active Substance: ATRACTYLODES LANCEA ROOT
     Indication: Vitamin supplementation
     Dosage: 1 DOSAGE FORM, QD AT NIGHT, (IN ALTERATION WITH ONE ALPHA
     Route: 048
     Dates: start: 202201

REACTIONS (20)
  - Feeling abnormal [Recovered/Resolved]
  - Hepatomegaly [Recovered/Resolved]
  - Hepatic enzyme increased [Recovered/Resolved]
  - Fall [Recovered/Resolved]
  - Multiple sclerosis relapse [Recovered/Resolved]
  - Urinary incontinence [Recovered/Resolved]
  - Disturbance in attention [Recovered/Resolved]
  - Speech disorder [Recovered/Resolved]
  - Balance disorder [Recovered/Resolved]
  - Multiple sclerosis relapse [Recovered/Resolved]
  - Limb discomfort [Recovered/Resolved]
  - Multiple sclerosis relapse [Recovering/Resolving]
  - Limb discomfort [Recovering/Resolving]
  - Balance disorder [Recovering/Resolving]
  - Dizziness [Recovered/Resolved]
  - Diarrhoea [Recovered/Resolved]
  - Hypoaesthesia [Recovering/Resolving]
  - Pain [Recovering/Resolving]
  - Musculoskeletal stiffness [Recovering/Resolving]
  - Product dispensing issue [Recovered/Resolved]

NARRATIVE: CASE EVENT DATE: 20210901
